FAERS Safety Report 19942947 (Version 7)
Quarter: 2022Q1

REPORT INFORMATION
  Report Type: Report from Study
  Country: US (occurrence: US)
  Receive Date: 20211012
  Receipt Date: 20220202
  Transmission Date: 20220424
  Serious: Yes (Hospitalization)
  Sender: FDA-Public Use
  Company Number: US-NOVARTISPH-NVSC2021US232692

PATIENT
  Age: 51 Year
  Sex: Female
  Weight: 116.1 kg

DRUGS (5)
  1. TREPROSTINIL [Suspect]
     Active Substance: TREPROSTINIL
     Indication: Pulmonary arterial hypertension
     Dosage: 1 DF, (25 NG/KG/MIN), CONT
     Route: 042
     Dates: start: 20211007
  2. ORENITRAM [Suspect]
     Active Substance: TREPROSTINIL
     Indication: Product used for unknown indication
     Dosage: UNK
     Route: 065
  3. CHLORAPREP [Suspect]
     Active Substance: CHLORHEXIDINE GLUCONATE\ISOPROPYL ALCOHOL
     Indication: Product used for unknown indication
     Route: 065
  4. ADEMPAS [Concomitant]
     Active Substance: RIOCIGUAT
     Indication: Product used for unknown indication
     Dosage: UNK
     Route: 065
  5. AMBRISENTAN [Concomitant]
     Active Substance: AMBRISENTAN
     Indication: Product used for unknown indication
     Dosage: UNK
     Route: 065

REACTIONS (18)
  - Hypervolaemia [Unknown]
  - Diabetes mellitus [Unknown]
  - Treatment failure [Unknown]
  - Arthralgia [Unknown]
  - Flushing [Recovered/Resolved]
  - Weight increased [Unknown]
  - Nasopharyngitis [Unknown]
  - Skin burning sensation [Unknown]
  - Pruritus [Unknown]
  - Skin irritation [Unknown]
  - Skin disorder [Unknown]
  - Psoriasis [Unknown]
  - Infusion site irritation [Unknown]
  - Nausea [Recovered/Resolved]
  - Infusion site erythema [Unknown]
  - Headache [Recovered/Resolved]
  - Fatigue [Unknown]
  - Infusion site rash [Unknown]

NARRATIVE: CASE EVENT DATE: 20220120
